FAERS Safety Report 6077545-4 (Version None)
Quarter: 2009Q1

REPORT INFORMATION
  Report Type: 
  Country: None (occurrence: None)
  Receive Date: 20090211
  Receipt Date: 20090130
  Transmission Date: 20090719
  Serious: No
  Sender: FDA-Public Use
  Company Number: 2008-188471-NL

PATIENT
  Age: 73 Year
  Sex: Male

DRUGS (7)
  1. CHORIONIC GONADTROPIN [Suspect]
     Indication: BLOOD TESTOSTERONE DECREASED
     Dosage: 5000 IU WEEKLY
     Dates: start: 19940101, end: 20081204
  2. ALDACTAZINE [Concomitant]
  3. BISOPROLOL FUMARATE [Concomitant]
  4. RABEPRAZOLE SODIUM [Concomitant]
  5. ALFUZOSIN HCL [Concomitant]
  6. ATORVASTATIN CALCIUM [Concomitant]
  7. CLOPIDOGREL BISULFATE [Concomitant]

REACTIONS (3)
  - BREAST CYST [None]
  - CALCINOSIS [None]
  - GYNAECOMASTIA [None]
